FAERS Safety Report 9204828 (Version 2)
Quarter: 2013Q2

REPORT INFORMATION
  Report Type: Spontaneous
  Country: US (occurrence: US)
  Receive Date: 20130402
  Receipt Date: 20130528
  Transmission Date: 20140414
  Serious: No
  Sender: FDA-Public Use
  Company Number: US-009507513-1303USA014352

PATIENT
  Sex: Female
  Weight: 81.63 kg

DRUGS (1)
  1. NASONEX [Suspect]
     Indication: HYPERSENSITIVITY
     Dosage: 2 SPRAYS IN EACH NOSTRIL,QD
     Route: 045
     Dates: start: 20130108, end: 20130401

REACTIONS (2)
  - Administration site pain [Unknown]
  - Product quality issue [Unknown]
